FAERS Safety Report 12422259 (Version 11)
Quarter: 2018Q1

REPORT INFORMATION
  Report Type: Report from Study
  Country: SK (occurrence: SK)
  Receive Date: 20160601
  Receipt Date: 20180129
  Transmission Date: 20180508
  Serious: Yes (Hospitalization)
  Sender: FDA-Public Use
  Company Number: SK-AMGEN-SVKCT2016068399

PATIENT
  Age: 51 Year
  Sex: Female
  Weight: 96 kg

DRUGS (13)
  1. LOKREN [Concomitant]
     Active Substance: BETAXOLOL HYDROCHLORIDE
     Dosage: 25 MG, UNK
     Route: 048
     Dates: start: 2008
  2. TENAXUM [Concomitant]
     Active Substance: RILMENIDINE
     Dosage: 1 MG, UNK
     Route: 048
     Dates: start: 2008
  3. MICARDIS PLUS [Concomitant]
     Active Substance: HYDROCHLOROTHIAZIDE\TELMISARTAN
     Dosage: 80 MG, UNK
     Route: 048
     Dates: start: 2008
  4. PARALEN [Concomitant]
     Active Substance: ACETAMINOPHEN
     Dosage: 500 MG, UNK
     Route: 048
     Dates: start: 20120720
  5. BERODUAL N [Concomitant]
     Active Substance: FENOTEROL HYDROBROMIDE\IPRATROPIUM BROMIDE
     Dosage: 1 UNK, UNK
     Route: 055
     Dates: start: 20121105
  6. CALTRATE [Concomitant]
     Active Substance: CALCIUM CARBONATE
     Dosage: 600 MG/400 IU, UNK
     Route: 048
     Dates: start: 20110908
  7. DENOSUMAB [Suspect]
     Active Substance: DENOSUMAB
     Indication: BREAST CANCER
     Dosage: 120 MG, UNK
     Route: 058
     Dates: start: 20110908, end: 20160303
  8. ECOBEC [Concomitant]
     Active Substance: BECLOMETHASONE DIPROPIONATE
     Dosage: 500 MCG, UNK
     Route: 055
     Dates: start: 20121112
  9. MEPIVASTESIN [Concomitant]
     Dosage: 1 ML, UNK
     Route: 061
     Dates: start: 20150114
  10. PYRIDOXIN [Concomitant]
     Active Substance: PYRIDOXINE
     Dosage: UNK
  11. PROPYCIL [Concomitant]
     Active Substance: PROPYLTHIOURACIL
     Dosage: 25 MG, UNK
     Route: 048
     Dates: start: 20140801
  12. GLIBOMET [Concomitant]
     Active Substance: GLYBURIDE\METFORMIN HYDROCHLORIDE
     Dosage: 100 MG, UNK
     Route: 048
     Dates: start: 20120502
  13. TAMOXIFEN [Concomitant]
     Active Substance: TAMOXIFEN
     Dosage: UNK

REACTIONS (2)
  - Abscess jaw [Recovered/Resolved]
  - Osteonecrosis of jaw [Recovered/Resolved]

NARRATIVE: CASE EVENT DATE: 20160511
